FAERS Safety Report 7088721-6 (Version None)
Quarter: 2010Q4

REPORT INFORMATION
  Report Type: 
  Country: None (occurrence: None)
  Receive Date: 20101108
  Receipt Date: 20101029
  Transmission Date: 20110411
  Serious: Yes (Hospitalization)
  Sender: FDA-Public Use
  Company Number: IT-BAXTER-2010BH027129

PATIENT

DRUGS (2)
  1. IFOSFAMIDE [Suspect]
     Indication: SARCOMA
     Dosage: DOSE UNIT:GRAMS PER METERS SQUARED
     Route: 065
  2. MESNA [Suspect]
     Indication: SARCOMA
     Dosage: DOSE UNIT:GRAMS PER METERS SQUARED
     Route: 065

REACTIONS (1)
  - STAPHYLOCOCCAL SEPSIS [None]
